FAERS Safety Report 9178092 (Version 2)
Quarter: 2014Q3

REPORT INFORMATION
  Report Type: Spontaneous
  Country: MX (occurrence: MX)
  Receive Date: 20130321
  Receipt Date: 20140730
  Transmission Date: 20150326
  Serious: Yes (Hospitalization, Other)
  Sender: FDA-Public Use
  Company Number: PHHY2013MX027756

PATIENT
  Age: 6 Year
  Sex: Female

DRUGS (2)
  1. TRILEPTAL [Suspect]
     Active Substance: OXCARBAZEPINE
     Indication: EPILEPSY
     Dosage: 2 DF, UNK (2 DOSES OF 6G/100ML)
     Route: 048
     Dates: start: 20120216
  2. RISPERIDONE. [Concomitant]
     Active Substance: RISPERIDONE
     Dosage: 15 DRP, DAILY
     Dates: start: 201202

REACTIONS (3)
  - Pharyngitis [Recovered/Resolved]
  - Gastric infection [Recovered/Resolved]
  - Autism [Unknown]

NARRATIVE: CASE EVENT DATE: 20130306
